FAERS Safety Report 8609999-0 (Version None)
Quarter: 2012Q3

REPORT INFORMATION
  Report Type: 
  Country: None (occurrence: None)
  Receive Date: 20120822
  Receipt Date: 20120718
  Transmission Date: 20120928
  Serious: Yes (Hospitalization)
  Sender: FDA-Public Use
  Company Number: JP-009507513-1207JPN007948

PATIENT

DRUGS (14)
  1. GLIMEPIRIDE [Concomitant]
     Indication: HYPERTENSION
     Dosage: DAILY DOSAGE UNKNOWN
     Route: 048
  2. GLIMEPIRIDE [Concomitant]
     Dosage: DAILY DOSAGE UNKNOWN
     Route: 048
  3. GLIMEPIRIDE [Concomitant]
     Indication: ANGINA PECTORIS
     Dosage: DAILY DOSAGE UNKNOWN
     Route: 048
  4. GLIMEPIRIDE [Concomitant]
     Dosage: DAILY DOSAGE UNKNOWN
     Route: 065
  5. DILTIAZEM HCL [Concomitant]
     Indication: HYPERTENSION
     Dosage: DAILY DOSAGE UNKNOWN
     Route: 065
  6. DILTIAZEM HCL [Concomitant]
     Indication: ANGINA PECTORIS
     Dosage: DAILY DOSAGE UNKNOWN
     Route: 065
  7. GLIMEPIRIDE [Concomitant]
     Dosage: DAILY DOSAGE UNKNOWN
     Route: 048
  8. GLIMEPIRIDE [Concomitant]
     Dosage: DAILY DOSAGE UNKNOWN
     Route: 065
  9. GLIMEPIRIDE [Concomitant]
     Dosage: DAILY DOSAGE UNKNOWN
     Route: 048
  10. PIOGLITAZONE HYDROCHLORIDE [Concomitant]
     Dosage: DAILY DOSAGE UNKNOWN
     Route: 048
  11. GLIMEPIRIDE [Concomitant]
     Indication: TYPE 2 DIABETES MELLITUS
     Dosage: DAILY DOSAGE UNKNOWN
     Route: 048
  12. JANUVIA [Suspect]
     Dosage: DAILY DOSE UNKNOWN
     Route: 048
     Dates: start: 20100501
  13. SITAGLIPTIN PHOSPHATE [Suspect]
     Indication: TYPE 2 DIABETES MELLITUS
     Dosage: DAILY DOSE UNKNOWN
     Route: 048
     Dates: start: 20100501
  14. PIOGLITAZONE HYDROCHLORIDE [Concomitant]
     Indication: TYPE 2 DIABETES MELLITUS
     Dosage: DAILY DOSAGE UNKNOWN
     Route: 048

REACTIONS (1)
  - ACUTE GENERALISED EXANTHEMATOUS PUSTULOSIS [None]
